FAERS Safety Report 7501897-9 (Version None)
Quarter: 2011Q2

REPORT INFORMATION
  Report Type: 
  Country: None (occurrence: None)
  Receive Date: 20110523
  Receipt Date: 20110523
  Transmission Date: 20111010
  Serious: No
  Sender: FDA-Public Use
  Company Number: None

PATIENT
  Age: 78 Year
  Sex: Female
  Weight: 83.4619 kg

DRUGS (2)
  1. PRADAXA [Suspect]
     Indication: ATRIAL FIBRILLATION
     Dosage: 75 MG TWICE A DAY BY MOUTH
     Route: 048
     Dates: start: 20110316, end: 20110504
  2. PRADAXA [Suspect]
     Indication: TRANSIENT ISCHAEMIC ATTACK
     Dosage: 75 MG TWICE A DAY BY MOUTH
     Route: 048
     Dates: start: 20110316, end: 20110504

REACTIONS (3)
  - NAUSEA [None]
  - HEADACHE [None]
  - MUSCLE SPASMS [None]
